FAERS Safety Report 11394996 (Version 2)
Quarter: 2015Q3

REPORT INFORMATION
  Report Type: Spontaneous
  Country: TH (occurrence: TH)
  Receive Date: 20150819
  Receipt Date: 20150908
  Transmission Date: 20151125
  Serious: Yes (Death, Hospitalization, Other)
  Sender: FDA-Public Use
  Company Number: TH-BAYER-2015-349847

PATIENT
  Age: 81 Year
  Sex: Male

DRUGS (3)
  1. STIVARGA [Suspect]
     Active Substance: REGORAFENIB
     Indication: COLORECTAL CANCER METASTATIC
     Dosage: 160 MG, QD
     Route: 048
     Dates: start: 20150606, end: 20150610
  2. COVERSYL [Concomitant]
     Active Substance: PERINDOPRIL
     Indication: HYPERTENSION
  3. CARDURA [Concomitant]
     Active Substance: DOXAZOSIN MESYLATE
     Indication: HYPERTENSION

REACTIONS (5)
  - Hypocalcaemia [Not Recovered/Not Resolved]
  - Colorectal cancer metastatic [Fatal]
  - Eastern Cooperative Oncology Group performance status worsened [None]
  - Upper gastrointestinal haemorrhage [Recovered/Resolved]
  - Atrial fibrillation [None]

NARRATIVE: CASE EVENT DATE: 20150610
